FAERS Safety Report 25518525 (Version 1)
Quarter: 2025Q3

REPORT INFORMATION
  Report Type: Spontaneous
  Country: GB (occurrence: GB)
  Receive Date: 20250704
  Receipt Date: 20250704
  Transmission Date: 20251021
  Serious: Yes (Other)
  Sender: HIKMA
  Company Number: GB-GSK-GB2025EME076154

PATIENT
  Age: 57 Year

DRUGS (3)
  1. CARBOPLATIN [Suspect]
     Active Substance: CARBOPLATIN
     Indication: Endometrial cancer stage IV
     Route: 065
  2. DOSTARLIMAB [Suspect]
     Active Substance: DOSTARLIMAB
     Indication: Endometrial cancer stage IV
     Route: 065
  3. PACLITAXEL [Suspect]
     Active Substance: PACLITAXEL
     Indication: Endometrial cancer stage IV
     Route: 065

REACTIONS (4)
  - Peritoneal neoplasm [Unknown]
  - Arthralgia [Unknown]
  - Toxicity to various agents [Unknown]
  - Therapy partial responder [Unknown]
